FAERS Safety Report 5648487-0 (Version None)
Quarter: 2008Q1

REPORT INFORMATION
  Report Type: 
  Country: None (occurrence: None)
  Receive Date: 20080131
  Receipt Date: 20071113
  Transmission Date: 20080703
  Serious: No
  Sender: FDA-Public Use
  Company Number: US200708001750

PATIENT
  Age: 52 Year
  Sex: Female
  Weight: 86.2 kg

DRUGS (5)
  1. BYETTA [Suspect]
     Indication: TYPE 2 DIABETES MELLITUS
     Dosage: 5 UG, 2/D, SUBCUTANEOUS ; 10 UG, 2/D, SUBCUTANEOUS
     Route: 058
     Dates: start: 20070802, end: 20071109
  2. BYETTA [Suspect]
     Indication: TYPE 2 DIABETES MELLITUS
     Dosage: 5 UG, 2/D, SUBCUTANEOUS ; 10 UG, 2/D, SUBCUTANEOUS
     Route: 058
     Dates: start: 20071110
  3. BYETTA [Suspect]
     Route: 058
  4. METFORMIN HCL [Concomitant]
  5. AVANDIA [Concomitant]

REACTIONS (7)
  - ABDOMINAL PAIN UPPER [None]
  - DEPRESSED MOOD [None]
  - DIARRHOEA [None]
  - DYSPEPSIA [None]
  - FEELING JITTERY [None]
  - HEADACHE [None]
  - NAUSEA [None]
